FAERS Safety Report 11063389 (Version 2)
Quarter: 2015Q2

REPORT INFORMATION
  Report Type: Spontaneous
  Country: US (occurrence: US)
  Receive Date: 20150424
  Receipt Date: 20150428
  Transmission Date: 20150821
  Serious: No
  Sender: FDA-Public Use
  Company Number: US-GLAXOSMITHKLINE-US2015049745

PATIENT
  Sex: Male

DRUGS (1)
  1. ABREVA [Suspect]
     Active Substance: DOCOSANOL
     Indication: ORAL HERPES
     Dates: start: 20150317, end: 20150329

REACTIONS (5)
  - Application site pain [Not Recovered/Not Resolved]
  - Oral herpes [Not Recovered/Not Resolved]
  - Condition aggravated [Not Recovered/Not Resolved]
  - Scar [Not Recovered/Not Resolved]
  - Drug ineffective [Not Recovered/Not Resolved]
